FAERS Safety Report 6335923-X (Version None)
Quarter: 2009Q3

REPORT INFORMATION
  Report Type: 
  Country: None (occurrence: None)
  Receive Date: 20090828
  Receipt Date: 20090828
  Transmission Date: 20100115
  Serious: Yes (Death, Life-Threatening, Hospitalization)
  Sender: FDA-Public Use
  Company Number: None

PATIENT
  Age: 33 Year
  Sex: Male
  Weight: 82 kg

DRUGS (1)
  1. CLONAZEPAM [Suspect]
     Indication: OVERDOSE
     Dosage: PO
     Route: 048
     Dates: start: 20090821

REACTIONS (11)
  - ALCOHOL USE [None]
  - ANOXIC ENCEPHALOPATHY [None]
  - CONVULSION [None]
  - DECEREBRATION [None]
  - GAIT DISTURBANCE [None]
  - HYPERHIDROSIS [None]
  - LOSS OF CONSCIOUSNESS [None]
  - MEDICATION ERROR [None]
  - MYOCLONUS [None]
  - POSTURING [None]
  - SELF-MEDICATION [None]
